FAERS Safety Report 16996460 (Version 1)
Quarter: 2019Q4

REPORT INFORMATION
  Report Type: Spontaneous
  Country: US (occurrence: US)
  Receive Date: 20191105
  Receipt Date: 20191105
  Transmission Date: 20200122
  Serious: No
  Sender: FDA-Public Use
  Company Number: US-SA-2019SA305915

PATIENT
  Sex: Male
  Weight: 72.56 kg

DRUGS (10)
  1. TADALAFIL. [Concomitant]
     Active Substance: TADALAFIL
  2. OMEPRAZOLE. [Concomitant]
     Active Substance: OMEPRAZOLE
  3. LEVOFLOXACIN. [Concomitant]
     Active Substance: LEVOFLOXACIN
  4. NUCALA [Suspect]
     Active Substance: MEPOLIZUMAB
  5. DUPIXENT [Suspect]
     Active Substance: DUPILUMAB
     Indication: ASTHMA
     Dosage: 300 MG, QOW
     Route: 058
     Dates: start: 20190801
  6. TESTOSTERONE CIPIONATE [Concomitant]
     Active Substance: TESTOSTERONE
  7. PREDNISONE. [Concomitant]
     Active Substance: PREDNISONE
  8. FAMCICLOVIR. [Concomitant]
     Active Substance: FAMCICLOVIR
  9. EPINEPHRINE. [Concomitant]
     Active Substance: EPINEPHRINE
  10. ALLEGRA-D [Concomitant]
     Active Substance: FEXOFENADINE\PSEUDOEPHEDRINE

REACTIONS (1)
  - Visual impairment [Unknown]
